FAERS Safety Report 5030127-5 (Version None)
Quarter: 2006Q2

REPORT INFORMATION
  Report Type: 
  Country: None (occurrence: None)
  Receive Date: 20060614
  Receipt Date: 20060602
  Transmission Date: 20061013
  Serious: Yes (Other)
  Sender: FDA-Public Use
  Company Number: FR200603004062

PATIENT
  Age: 50 Year
  Sex: Male
  Weight: 85 kg

DRUGS (8)
  1. ALIMTA [Suspect]
     Indication: NON-SMALL CELL LUNG CANCER
     Dosage: SEE IMAGE
     Route: 042
     Dates: start: 20060105, end: 20060105
  2. ALIMTA [Suspect]
     Indication: NON-SMALL CELL LUNG CANCER
     Dosage: SEE IMAGE
     Route: 042
     Dates: start: 20060126, end: 20060126
  3. ALIMTA [Suspect]
  4. KARDEGIC /FRA/ (ACETYLSALICYLATE LYSINE) [Concomitant]
  5. SIMVASTATIN [Concomitant]
  6. DILTIAZEM HCL [Concomitant]
  7. STILNOX /FRA/ (ZOLPIDEM) [Concomitant]
  8. BRONCHODUAL (FENOTEROL HYDROBROMIDE, IPRATROPIUM BROMIDE) [Concomitant]

REACTIONS (3)
  - CONJUNCTIVITIS [None]
  - DACRYOSTENOSIS ACQUIRED [None]
  - ERYSIPELOID [None]
